FAERS Safety Report 9300731 (Version 1)
Quarter: 2013Q2

REPORT INFORMATION
  Report Type: Spontaneous
  Country: US (occurrence: None)
  Receive Date: 20130520
  Receipt Date: 20130520
  Transmission Date: 20140414
  Serious: Yes (Hospitalization, Disabling)
  Sender: FDA-Public Use
  Company Number: None

PATIENT
  Age: 57 Year
  Sex: Male
  Weight: 96.62 kg

DRUGS (1)
  1. PRIVIGEN [Suspect]
     Indication: GUILLAIN-BARRE SYNDROME
     Route: 041
     Dates: start: 20130502, end: 20130506

REACTIONS (4)
  - Rash [None]
  - Jaundice [None]
  - Haemolysis [None]
  - Dialysis [None]
